FAERS Safety Report 8503266-1 (Version None)
Quarter: 2012Q3

REPORT INFORMATION
  Report Type: 
  Country: None (occurrence: None)
  Receive Date: 20120711
  Receipt Date: 20120705
  Transmission Date: 20120928
  Serious: No
  Sender: FDA-Public Use
  Company Number: US-PFIZER INC-2012162376

PATIENT
  Sex: Male
  Weight: 90.703 kg

DRUGS (4)
  1. DILANTIN-125 [Suspect]
     Indication: CONVULSION
     Dosage: UNK
  2. DILANTIN-125 [Suspect]
     Dosage: 300 MG IN THE MORNING, 200 MG IN THE AFTERNOON AND 300 MG IN THE EVENING
  3. TERAZOSIN [Concomitant]
     Indication: PROSTATIC DISORDER
     Dosage: 2 MG, DAILY
  4. NAPROXEN [Concomitant]
     Indication: PAIN
     Dosage: 500 MG, 2X/DAY

REACTIONS (2)
  - ACCIDENTAL OVERDOSE [None]
  - VISION BLURRED [None]
